FAERS Safety Report 15330688 (Version 2)
Quarter: 2018Q3

REPORT INFORMATION
  Report Type: Spontaneous
  Country: TR (occurrence: TR)
  Receive Date: 20180829
  Receipt Date: 20180831
  Transmission Date: 20181010
  Serious: Yes (Hospitalization, Other)
  Sender: FDA-Public Use
  Company Number: PHHY2018TR079659

PATIENT
  Age: 41 Year
  Sex: Male

DRUGS (3)
  1. AMOXICILLIN 875 MG, CLAVULANIC ACID 125 MG [Concomitant]
     Indication: PRODUCT USED FOR UNKNOWN INDICATION
     Dosage: 1 DF, UNK
     Route: 048
  2. METHYLPREDNISOLONE. [Suspect]
     Active Substance: METHYLPREDNISOLONE
     Indication: RHINITIS ALLERGIC
     Dosage: 4 MG, UNK
     Route: 048
  3. METHYLPREDNISOLONE. [Suspect]
     Active Substance: METHYLPREDNISOLONE
     Indication: NASAL POLYPS
     Dosage: UNK
     Route: 065

REACTIONS (11)
  - Osteomyelitis [Unknown]
  - Impaired healing [Unknown]
  - Discomfort [Unknown]
  - Breath odour [Unknown]
  - Product use in unapproved indication [Unknown]
  - Intentional overdose [Unknown]
  - Purulent discharge [Unknown]
  - Pain [Unknown]
  - Incorrect drug administration duration [Recovered/Resolved]
  - Alveolar osteitis [Unknown]
  - Bacterial infection [Unknown]
